FAERS Safety Report 21001726 (Version 2)
Quarter: 2022Q2

REPORT INFORMATION
  Report Type: Report from Study
  Country: BR (occurrence: BR)
  Receive Date: 20220624
  Receipt Date: 20220628
  Transmission Date: 20220721
  Serious: Yes (Hospitalization, Other)
  Sender: FDA-Public Use
  Company Number: BR-JNJFOC-20220634623

PATIENT
  Age: 58 Year
  Sex: Female

DRUGS (5)
  1. SIMPONI [Suspect]
     Active Substance: GOLIMUMAB
     Indication: Rheumatoid arthritis
     Route: 058
     Dates: start: 20170810
  2. SIMPONI [Suspect]
     Active Substance: GOLIMUMAB
  3. COVID-19 VACCINE NOS [Suspect]
     Active Substance: COVID-19 VACCINE NOS
     Indication: COVID-19
     Route: 065
     Dates: start: 20220613
  4. METOCLOPRAMIDE [Concomitant]
     Active Substance: METOCLOPRAMIDE
  5. PENICILLIN G BENZATHINE [Concomitant]
     Active Substance: PENICILLIN G BENZATHINE

REACTIONS (9)
  - Blood glucose fluctuation [Unknown]
  - Blood pressure abnormal [Unknown]
  - Kidney infection [Unknown]
  - Polyneuropathy [Unknown]
  - Peripheral swelling [Unknown]
  - COVID-19 [Unknown]
  - Pyrexia [Unknown]
  - Arthralgia [Unknown]
  - Dengue fever [Unknown]

NARRATIVE: CASE EVENT DATE: 20220101
